FAERS Safety Report 6207747-5 (Version None)
Quarter: 2009Q2

REPORT INFORMATION
  Report Type: 
  Country: None (occurrence: None)
  Receive Date: 20090526
  Receipt Date: 20090512
  Transmission Date: 20091009
  Serious: Yes (Hospitalization)
  Sender: FDA-Public Use
  Company Number: 006007

PATIENT
  Age: 88 Year
  Sex: Male

DRUGS (3)
  1. PLETAL [Suspect]
     Indication: INTERMITTENT CLAUDICATION
     Dosage: 100 MG, BID ORAL; 100 MG, DAILY DOSE; ORAL
     Route: 048
     Dates: start: 19930527, end: 20090326
  2. PLETAL [Suspect]
     Indication: INTERMITTENT CLAUDICATION
     Dosage: 100 MG, BID ORAL; 100 MG, DAILY DOSE; ORAL
     Route: 048
     Dates: start: 20090327
  3. LENDORMIN (BROTIZOLAM) TABLET [Concomitant]

REACTIONS (3)
  - FOOD INTERACTION [None]
  - HYPOAESTHESIA [None]
  - PALPITATIONS [None]
